FAERS Safety Report 8055968-1 (Version None)
Quarter: 2012Q1

REPORT INFORMATION
  Report Type: 
  Country: None (occurrence: None)
  Receive Date: 20120119
  Receipt Date: 20111130
  Transmission Date: 20120608
  Serious: Yes (Other)
  Sender: FDA-Public Use
  Company Number: AR-ROCHE-1019143

PATIENT
  Sex: Female

DRUGS (2)
  1. LUCENTIS [Suspect]
     Indication: MACULOPATHY
  2. LUCENTIS [Suspect]
     Dates: start: 20110801

REACTIONS (1)
  - DEMENTIA ALZHEIMER'S TYPE [None]
